FAERS Safety Report 24066577 (Version 3)
Quarter: 2024Q3

REPORT INFORMATION
  Report Type: Spontaneous
  Country: DE (occurrence: None)
  Receive Date: 20240709
  Receipt Date: 20240809
  Transmission Date: 20241017
  Serious: Yes (Hospitalization, Other)
  Sender: ASTRAZENECA
  Company Number: 2024A154901

PATIENT
  Age: 73 Year
  Sex: Male

DRUGS (12)
  1. CALQUENCE [Suspect]
     Active Substance: ACALABRUTINIB
     Indication: Chronic lymphocytic leukaemia
     Route: 048
  2. RIVAROXABAN [Concomitant]
     Active Substance: RIVAROXABAN
  3. PANTOPRAZOLE SODIUM [Concomitant]
     Active Substance: PANTOPRAZOLE SODIUM
  4. XIPAMIDE [Concomitant]
     Active Substance: XIPAMIDE
  5. LERCANIDIPINE [Concomitant]
     Active Substance: LERCANIDIPINE
  6. BISOPROLOL [Concomitant]
     Active Substance: BISOPROLOL\BISOPROLOL FUMARATE
  7. RAMIPRIL [Concomitant]
     Active Substance: RAMIPRIL
  8. FORMOTEROL [Concomitant]
     Active Substance: FORMOTEROL
  9. TIOTROPIUM [Concomitant]
     Active Substance: TIOTROPIUM
  10. POLYETHYLENE GLYCOLS [Concomitant]
     Active Substance: POLYETHYLENE GLYCOLS
  11. NATRIURNPICOSULFAT [Concomitant]
  12. METAMIZOL [Concomitant]
     Active Substance: METAMIZOLE SODIUM

REACTIONS (18)
  - COVID-19 pneumonia [Unknown]
  - Superinfection bacterial [Unknown]
  - Renal impairment [Unknown]
  - Chronic obstructive pulmonary disease [Unknown]
  - Thrombocytopenia [Unknown]
  - Atrial fibrillation [Unknown]
  - TP53 gene mutation [Unknown]
  - Neoplasm malignant [Unknown]
  - General physical health deterioration [Unknown]
  - Myalgia [Unknown]
  - Weight increased [Unknown]
  - Oedema peripheral [Unknown]
  - Bile duct stone [Unknown]
  - Chronic obstructive pulmonary disease [Unknown]
  - Hypertension [Unknown]
  - Glucose tolerance impaired [Unknown]
  - Hyperuricaemia [Unknown]
  - Hernia [Unknown]

NARRATIVE: CASE EVENT DATE: 20231227
